FAERS Safety Report 10095271 (Version 1)
Quarter: 2014Q2

REPORT INFORMATION
  Report Type: Spontaneous
  Country: US (occurrence: None)
  Receive Date: 20140418
  Receipt Date: 20140418
  Transmission Date: 20141212
  Serious: Yes (Other)
  Sender: FDA-Public Use
  Company Number: UTC-047239

PATIENT
  Age: 71 Year
  Sex: Male
  Weight: 71.21 kg

DRUGS (3)
  1. TYVASO [Suspect]
     Indication: PULMONARY ARTERIAL HYPERTENSION
     Route: 055
     Dates: start: 20140331
  2. REVATIO (SILDENAFIL CITRATE) [Concomitant]
  3. WARFARIN (WARFARIN) [Concomitant]

REACTIONS (5)
  - Haemoptysis [None]
  - Seizure like phenomena [None]
  - Cough [None]
  - Chest discomfort [None]
  - Drug dose omission [None]
